FAERS Safety Report 4683165-6 (Version None)
Quarter: 2005Q2

REPORT INFORMATION
  Report Type: 
  Country: None (occurrence: None)
  Receive Date: 20050602
  Receipt Date: 20050405
  Transmission Date: 20051028
  Serious: No
  Sender: FDA-Public Use
  Company Number: USA050392909

PATIENT
  Age: 44 Year
  Sex: Female
  Weight: 116 kg

DRUGS (4)
  1. CYMBALTA [Suspect]
     Indication: DEPRESSION
     Dosage: 60 MG
  2. NEURONTIN (GABAPENTIN PFIZER) [Concomitant]
  3. LOESTRIN 1.5/30 [Concomitant]
  4. IBUPROFEN [Concomitant]

REACTIONS (1)
  - BLOOD PRESSURE INCREASED [None]
